FAERS Safety Report 22362401 (Version 2)
Quarter: 2023Q2

REPORT INFORMATION
  Report Type: Report from Study
  Country: BR (occurrence: BR)
  Receive Date: 20230524
  Receipt Date: 20230612
  Transmission Date: 20230722
  Serious: Yes (Death, Other)
  Sender: FDA-Public Use
  Company Number: BR-BAYER-2023A068955

PATIENT
  Age: 61 Year
  Sex: Male

DRUGS (4)
  1. NEXAVAR [Suspect]
     Active Substance: SORAFENIB
     Indication: Hepatocellular carcinoma
     Dosage: 400 MG, BID
     Dates: start: 20230508, end: 202305
  2. LOSARTAN [Concomitant]
     Active Substance: LOSARTAN
     Indication: Hypertension
     Dosage: TAKE 1 TABLET A DAY
  3. HYDROCHLOROTHIAZIDE [Concomitant]
     Active Substance: HYDROCHLOROTHIAZIDE
     Dosage: TAKE 1 TABLET A DAY
  4. DIPYRONE [Concomitant]
     Active Substance: DIPYRONE
     Indication: Pain
     Dosage: TAKES 1 TABLET FOUR TIMES A DAY

REACTIONS (4)
  - Death [Fatal]
  - Muscular weakness [Not Recovered/Not Resolved]
  - Gait disturbance [Not Recovered/Not Resolved]
  - Pruritus [Not Recovered/Not Resolved]

NARRATIVE: CASE EVENT DATE: 20230501
